FAERS Safety Report 8806399 (Version 7)
Quarter: 2015Q2

REPORT INFORMATION
  Report Type: Spontaneous
  Country: US (occurrence: US)
  Receive Date: 20120925
  Receipt Date: 20150611
  Transmission Date: 20150821
  Serious: Yes (Hospitalization, Disabling, Other)
  Sender: FDA-Public Use
  Company Number: US-BAYER-2012-098194

PATIENT
  Age: 37 Year
  Sex: Female

DRUGS (7)
  1. BENADRYL [Concomitant]
     Active Substance: DIPHENHYDRAMINE HYDROCHLORIDE
  2. MORPHINE [Concomitant]
     Active Substance: MORPHINE
  3. LO/OVRAL [Concomitant]
     Active Substance: ETHINYL ESTRADIOL\NORGESTREL
     Indication: MENOMETRORRHAGIA
  4. NAPROXEN. [Concomitant]
     Active Substance: NAPROXEN
  5. YASMIN [Suspect]
     Active Substance: DROSPIRENONE\ETHINYL ESTRADIOL
     Indication: MENOMETRORRHAGIA
     Dosage: UNK
     Dates: start: 2009
  6. MVI [Concomitant]
     Active Substance: VITAMINS
  7. SUDAFED [Concomitant]
     Active Substance: PSEUDOEPHEDRINE HYDROCHLORIDE

REACTIONS (7)
  - Pain [Recovered/Resolved]
  - Gait disturbance [Recovered/Resolved]
  - Injury [None]
  - Intracardiac thrombus [None]
  - Pelvic venous thrombosis [Recovered/Resolved]
  - Deep vein thrombosis [Recovered/Resolved]
  - Peripheral swelling [Recovered/Resolved]

NARRATIVE: CASE EVENT DATE: 201101
